FAERS Safety Report 8897832 (Version 3)
Quarter: 2013Q1

REPORT INFORMATION
  Report Type: Spontaneous
  Country: SE (occurrence: SE)
  Receive Date: 20121109
  Receipt Date: 20130103
  Transmission Date: 20140127
  Serious: Yes (Other)
  Sender: FDA-Public Use
  Company Number: SE-ELI_LILLY_AND_COMPANY-SE201211001345

PATIENT
  Age: 68 Year
  Sex: Male

DRUGS (9)
  1. CIALIS [Suspect]
     Dosage: 1 DF, UNKNOWN
     Dates: start: 201209
  2. STALEVO [Concomitant]
  3. EZETROL [Concomitant]
  4. AZILECT [Concomitant]
  5. METOPROLOL [Concomitant]
  6. SIFROL [Concomitant]
  7. BEHEPAN [Concomitant]
  8. SINEMET [Concomitant]
  9. TROMBYL [Concomitant]

REACTIONS (1)
  - Optic ischaemic neuropathy [Not Recovered/Not Resolved]
